FAERS Safety Report 18894084 (Version 1)
Quarter: 2021Q1

REPORT INFORMATION
  Report Type: Spontaneous
  Country: US (occurrence: US)
  Receive Date: 20210215
  Receipt Date: 20210215
  Transmission Date: 20210420
  Serious: Yes (Disabling, Other)
  Sender: FDA-Public Use
  Company Number: US-PFIZER INC-2021121545

PATIENT
  Age: 68 Year

DRUGS (1)
  1. PREMPRO [Suspect]
     Active Substance: ESTROGENS, CONJUGATED\MEDROXYPROGESTERONE ACETATE
     Dosage: UNK

REACTIONS (4)
  - Dysstasia [Unknown]
  - Compression fracture [Unknown]
  - Illness [Unknown]
  - Aphonia [Unknown]

NARRATIVE: CASE EVENT DATE: 2020
